FAERS Safety Report 8307480-X (Version None)
Quarter: 2012Q2

REPORT INFORMATION
  Report Type: 
  Country: None (occurrence: None)
  Receive Date: 20120424
  Receipt Date: 20120418
  Transmission Date: 20120825
  Serious: No
  Sender: FDA-Public Use
  Company Number: US-PFIZER INC-2012096669

PATIENT
  Age: 82 Year
  Sex: Male

DRUGS (9)
  1. JANUVIA [Concomitant]
     Dosage: 50 MG, DAILY
  2. PROCRIT [Concomitant]
     Dosage: 3600 IU, EVERY TWO WEEKS
  3. LIPITOR [Suspect]
     Indication: HYPERCHOLESTEROLAEMIA
     Dosage: UNK
     Route: 048
  4. GLUCOSAMINE [Concomitant]
     Dosage: UNK, DAILY
  5. ACTOS [Concomitant]
     Dosage: 45 MG, DAILY
  6. NORVASC [Concomitant]
     Dosage: 10 MG, DAILY
  7. VITAMIN D [Concomitant]
     Dosage: 1000 IU, DAILY
  8. GLIMEPIRIDE [Concomitant]
     Dosage: 4 MG, DAILY
  9. METOPROLOL TARTRATE [Concomitant]
     Dosage: 50 MG, 2X/DAY

REACTIONS (1)
  - BLOOD CALCIUM INCREASED [None]
